FAERS Safety Report 6908414-2 (Version None)
Quarter: 2010Q3

REPORT INFORMATION
  Report Type: 
  Country: None (occurrence: None)
  Receive Date: 20100805
  Receipt Date: 20100727
  Transmission Date: 20110219
  Serious: No
  Sender: FDA-Public Use
  Company Number: US-JNJFOC-20100708695

PATIENT
  Sex: Male
  Weight: 86.18 kg

DRUGS (2)
  1. FENTANYL CITRATE [Suspect]
     Indication: BONE NEOPLASM MALIGNANT
     Route: 062
  2. FENTANYL CITRATE [Suspect]
     Indication: ARTHRALGIA
     Route: 062

REACTIONS (3)
  - DRUG INEFFECTIVE [None]
  - PRODUCT QUALITY ISSUE [None]
  - WRONG TECHNIQUE IN DRUG USAGE PROCESS [None]
